FAERS Safety Report 9518846 (Version 2)
Quarter: 2013Q3

REPORT INFORMATION
  Report Type: Spontaneous
  Country: KR (occurrence: KR)
  Receive Date: 20130912
  Receipt Date: 20130920
  Transmission Date: 20140515
  Serious: Yes (Other)
  Sender: FDA-Public Use
  Company Number: KR-ASTRAZENECA-2013SE67312

PATIENT
  Age: 70 Year
  Sex: Male

DRUGS (1)
  1. BRILINTA [Suspect]
     Indication: PERCUTANEOUS CORONARY INTERVENTION
     Dosage: LOADING DOSE
     Route: 048

REACTIONS (2)
  - Haemoglobin decreased [Unknown]
  - Upper gastrointestinal haemorrhage [Unknown]
